FAERS Safety Report 5144469-6 (Version None)
Quarter: 2006Q4

REPORT INFORMATION
  Report Type: 
  Country: None (occurrence: None)
  Receive Date: 20061031
  Receipt Date: 20061018
  Transmission Date: 20070319
  Serious: Yes (Other)
  Sender: FDA-Public Use
  Company Number: 805#9#2006-00102

PATIENT
  Age: 67 Year
  Sex: Male

DRUGS (7)
  1. ALPROSTADIL [Suspect]
     Indication: THROMBOANGIITIS OBLITERANS
     Dosage: 120 MCG (60 MCG 1 IN 2 DAY (S)) INTRAVENOUS DRIP
     Route: 041
     Dates: start: 20060829, end: 20060830
  2. LISINOPRIL [Concomitant]
  3. ISOSORBIDE MONONITRATE [Concomitant]
  4. ALLOPURINOL [Concomitant]
  5. AMLODIPINE BESYLATE [Concomitant]
  6. ASPIRIN [Concomitant]
  7. INSULIN ASPART (INSULIN ASPART) [Concomitant]

REACTIONS (1)
  - DUODENAL ULCER HAEMORRHAGE [None]
